FAERS Safety Report 17218292 (Version 1)
Quarter: 2019Q4

REPORT INFORMATION
  Report Type: Spontaneous
  Country: US (occurrence: US)
  Receive Date: 20191231
  Receipt Date: 20191231
  Transmission Date: 20200122
  Serious: Yes (Hospitalization)
  Sender: FDA-Public Use
  Company Number: US-STRIDES ARCOLAB LIMITED-2019SP013277

PATIENT
  Age: 62 Year
  Sex: Male

DRUGS (2)
  1. VANCOMYCIN [Suspect]
     Active Substance: VANCOMYCIN
     Indication: ENDOCARDITIS
     Dosage: UNK
     Route: 042
  2. VANCOMYCIN [Suspect]
     Active Substance: VANCOMYCIN
     Indication: STAPHYLOCOCCAL INFECTION

REACTIONS (10)
  - Pruritus [Recovered/Resolved]
  - Rash macular [Recovered/Resolved]
  - Pyrexia [Unknown]
  - Pain of skin [Unknown]
  - Eosinophilia [Recovered/Resolved]
  - Rash erythematous [Recovered/Resolved]
  - Drug reaction with eosinophilia and systemic symptoms [Recovered/Resolved]
  - Exfoliative rash [Recovered/Resolved]
  - Ageusia [Recovered/Resolved]
  - Leukocytosis [Recovered/Resolved]
